FAERS Safety Report 21063800 (Version 1)
Quarter: 2022Q3

REPORT INFORMATION
  Report Type: Spontaneous
  Country: PT (occurrence: None)
  Receive Date: 20220711
  Receipt Date: 20220711
  Transmission Date: 20221027
  Serious: Yes (Death)
  Sender: FDA-Public Use
  Company Number: PT-ROCHE-3134609

PATIENT
  Sex: Female
  Weight: 51 kg

DRUGS (9)
  1. RITUXIMAB [Suspect]
     Active Substance: RITUXIMAB
     Indication: Primary mediastinal large B-cell lymphoma
     Route: 042
     Dates: start: 20190101, end: 20190801
  2. RITUXIMAB [Suspect]
     Active Substance: RITUXIMAB
     Route: 042
     Dates: start: 20200301, end: 20200501
  3. CYCLOPHOSPHAMIDE [Concomitant]
     Active Substance: CYCLOPHOSPHAMIDE
     Indication: Primary mediastinal large B-cell lymphoma
     Route: 042
     Dates: start: 20190101, end: 20190801
  4. DOXORUBICIN HYDROCHLORIDE [Concomitant]
     Active Substance: DOXORUBICIN HYDROCHLORIDE
     Indication: Primary mediastinal large B-cell lymphoma
     Route: 042
     Dates: start: 20190101, end: 20190801
  5. VINCRISTINE [Concomitant]
     Active Substance: VINCRISTINE
     Indication: Primary mediastinal large B-cell lymphoma
     Dates: start: 20190101, end: 20190801
  6. PREDNISONE [Concomitant]
     Active Substance: PREDNISONE
     Indication: Primary mediastinal large B-cell lymphoma
     Route: 042
     Dates: start: 20190101, end: 20190801
  7. IFOSFAMIDE [Concomitant]
     Active Substance: IFOSFAMIDE
  8. CARBOPLATIN [Concomitant]
     Active Substance: CARBOPLATIN
  9. ETOPOSIDE [Concomitant]
     Active Substance: ETOPOSIDE

REACTIONS (1)
  - Disease progression [Fatal]
